FAERS Safety Report 9287664 (Version 1)
Quarter: 2013Q2

REPORT INFORMATION
  Report Type: Report from Study
  Country: US (occurrence: US)
  Receive Date: 20130514
  Receipt Date: 20130514
  Transmission Date: 20140414
  Serious: Yes (Other)
  Sender: FDA-Public Use
  Company Number: PHEH2013US010527

PATIENT
  Sex: Male

DRUGS (11)
  1. ZOMETA [Suspect]
     Dosage: 4 MG /5 ML
  2. REVLIMID [Suspect]
     Dosage: UNK UKN, UNK
  3. LIPOIC ACID [Concomitant]
     Dosage: 100 MG, UNK
  4. SULFATRIM [Concomitant]
     Dosage: 200-40/5
  5. ACYCLOVIR [Concomitant]
     Dosage: 200 MG, UNK
  6. ONDANSETRON [Concomitant]
     Dosage: 8 MG, UNK
  7. PROPECIA [Concomitant]
     Dosage: 1 MG, UNK
  8. FOLIC ACID [Concomitant]
  9. MULTI-VIT [Concomitant]
  10. DEXAMETHASONE [Concomitant]
  11. VELCADE [Concomitant]

REACTIONS (1)
  - Neuropathy peripheral [Unknown]
